FAERS Safety Report 9311224 (Version 2)
Quarter: 2013Q2

REPORT INFORMATION
  Report Type: Other
  Country: CA (occurrence: CA)
  Receive Date: 20130528
  Receipt Date: 20130624
  Transmission Date: 20140414
  Serious: Yes (Life-Threatening, Hospitalization)
  Sender: FDA-Public Use
  Company Number: CA-MILLENNIUM PHARMACEUTICALS, INC.-2013-04025

PATIENT
  Sex: 0

DRUGS (10)
  1. VELCADE [Suspect]
     Indication: PLASMA CELL MYELOMA
     Dosage: 2.0 MG, 1/WEEK
     Route: 042
     Dates: start: 20121107, end: 20121114
  2. ALLOPURINOL [Concomitant]
  3. AMLODIPINE [Concomitant]
  4. BISOPROLOL [Concomitant]
  5. CALCIUM [Concomitant]
  6. COLCHICINE [Concomitant]
  7. FOLIC ACID [Concomitant]
  8. METHOTREXATE [Concomitant]
  9. SYNTHROID [Concomitant]
  10. DEXAMETHASONE [Concomitant]
     Indication: PLASMA CELL MYELOMA
     Dosage: UNK
     Dates: start: 20121107

REACTIONS (4)
  - Serum sickness [Recovered/Resolved]
  - Lung disorder [Recovered/Resolved]
  - Hypoxia [Recovered/Resolved]
  - Respiratory failure [Recovered/Resolved]
